FAERS Safety Report 5975305-3 (Version None)
Quarter: 2008Q4

REPORT INFORMATION
  Report Type: 
  Country: None (occurrence: None)
  Receive Date: 20081202
  Receipt Date: 20081126
  Transmission Date: 20090506
  Serious: Yes (Hospitalization)
  Sender: FDA-Public Use
  Company Number: US-BAYER-200825405NA

PATIENT
  Age: 73 Year
  Sex: Male

DRUGS (3)
  1. NEXAVAR [Suspect]
     Indication: RENAL CELL CARCINOMA
  2. LANTUS [Suspect]
     Dosage: TOTAL DAILY DOSE: 70 U
     Route: 058
  3. ACTOS [Suspect]

REACTIONS (2)
  - CONVULSION [None]
  - HYPOGLYCAEMIA [None]
